FAERS Safety Report 13569936 (Version 1)
Quarter: 2017Q2

REPORT INFORMATION
  Report Type: Spontaneous
  Country: US (occurrence: US)
  Receive Date: 20170522
  Receipt Date: 20170522
  Transmission Date: 20170830
  Serious: Yes (Hospitalization)
  Sender: FDA-Public Use
  Company Number: US-TEVA-770689USA

PATIENT
  Age: 21 Year
  Sex: Male

DRUGS (1)
  1. NICOTINIC ACID [Suspect]
     Active Substance: NIACIN
     Dosage: LARGE NUMBER OF 500MG TABLETS OVER A 10 HOUR PERIOD
     Route: 048

REACTIONS (12)
  - Blood creatinine increased [Recovered/Resolved]
  - Heart rate increased [Recovering/Resolving]
  - Vomiting [Recovering/Resolving]
  - Overdose [Recovering/Resolving]
  - Aspartate aminotransferase increased [Recovered/Resolved]
  - Abdominal pain [Recovering/Resolving]
  - Headache [Recovering/Resolving]
  - Photophobia [Recovering/Resolving]
  - Metabolic acidosis [Recovered/Resolved]
  - Nausea [Recovering/Resolving]
  - Myalgia [Recovering/Resolving]
  - Prothrombin time prolonged [Not Recovered/Not Resolved]
